FAERS Safety Report 8694115 (Version 5)
Quarter: 2014Q4

REPORT INFORMATION
  Report Type: Spontaneous
  Country: US (occurrence: US)
  Receive Date: 20120731
  Receipt Date: 20141104
  Transmission Date: 20150529
  Serious: Yes (Other)
  Sender: FDA-Public Use
  Company Number: US-US-EMD SERONO, INC.-7149943

PATIENT
  Sex: Female

DRUGS (5)
  1. EPITOL [Concomitant]
     Active Substance: CARBAMAZEPINE
     Indication: NEURALGIA
  2. ZANAFLEX [Concomitant]
     Active Substance: TIZANIDINE HYDROCHLORIDE
     Indication: INSOMNIA
  3. REBIF [Suspect]
     Active Substance: INTERFERON BETA-1A
     Indication: MULTIPLE SCLEROSIS
     Route: 058
     Dates: start: 20111020
  4. EPITOL [Concomitant]
     Active Substance: CARBAMAZEPINE
     Indication: PAIN
  5. VALIUM [Concomitant]
     Active Substance: DIAZEPAM
     Indication: TREMOR

REACTIONS (4)
  - Abasia [Not Recovered/Not Resolved]
  - Feeling of body temperature change [Not Recovered/Not Resolved]
  - Suicide attempt [Recovered/Resolved]
  - Depression [Not Recovered/Not Resolved]
